FAERS Safety Report 24798095 (Version 2)
Quarter: 2025Q1

REPORT INFORMATION
  Report Type: Spontaneous
  Country: US (occurrence: US)
  Receive Date: 20250102
  Receipt Date: 20250102
  Transmission Date: 20250409
  Serious: Yes (Other)
  Sender: ROCHE
  Company Number: US-002147023-NVSC2024US246302

PATIENT
  Age: 19 Year
  Sex: Male

DRUGS (7)
  1. OMALIZUMAB [Suspect]
     Active Substance: OMALIZUMAB
     Indication: Blood immunoglobulin E abnormal
     Route: 065
  2. COSENTYX [Suspect]
     Active Substance: SECUKINUMAB
     Indication: Ankylosing spondylitis
     Route: 065
  3. ACETYLCYSTEINE [Concomitant]
     Active Substance: ACETYLCYSTEINE
     Indication: Product used for unknown indication
     Route: 065
  4. ODIMONT [Concomitant]
     Indication: Product used for unknown indication
     Route: 065
  5. Duolin [Concomitant]
     Indication: Product used for unknown indication
     Route: 065
  6. BUDESONIDE [Concomitant]
     Active Substance: BUDESONIDE
     Indication: Product used for unknown indication
     Dosage: UNK, QD (FOR 30 DAYS)
     Route: 065
  7. ZIFI O [Concomitant]
     Indication: Infection
     Route: 065

REACTIONS (7)
  - Asphyxia [Unknown]
  - Chest discomfort [Unknown]
  - Cough [Unknown]
  - Wheezing [Unknown]
  - Nocturnal dyspnoea [Unknown]
  - Productive cough [Unknown]
  - Off label use [Unknown]
